FAERS Safety Report 24131441 (Version 1)
Quarter: 2024Q3

REPORT INFORMATION
  Report Type: Spontaneous
  Country: US (occurrence: None)
  Receive Date: 20240723
  Receipt Date: 20240723
  Transmission Date: 20241017
  Serious: Yes (Hospitalization)
  Sender: Public
  Company Number: None

PATIENT
  Age: 85 Year
  Sex: Male

DRUGS (1)
  1. ERLEADA [Suspect]
     Active Substance: APALUTAMIDE
     Indication: Prostate cancer
     Dosage: OTHER FREQUENCY : 4 TABLETS BY MOUTH DAILY;?
     Route: 048

REACTIONS (5)
  - Gastric haemorrhage [None]
  - Fluid retention [None]
  - Drug interaction [None]
  - Peripheral swelling [None]
  - Joint swelling [None]
